FAERS Safety Report 7962233 (Version 5)
Quarter: 2013Q1

REPORT INFORMATION
  Report Type: Report from Study
  Country: JP (occurrence: JP)
  Receive Date: 20110526
  Receipt Date: 20130115
  Transmission Date: 20140127
  Serious: Yes (Hospitalization)
  Sender: FDA-Public Use
  Company Number: PHHO2011JP08645

PATIENT
  Sex: 0
  Weight: 61 kg

DRUGS (27)
  1. AMN107 [Suspect]
     Indication: GASTROINTESTINAL STROMAL TUMOUR
     Dosage: UNK
     Route: 048
     Dates: start: 20101125, end: 20110424
  2. AMN107 [Suspect]
     Dosage: NO TREATMENT RECEIVED
     Dates: start: 20110425, end: 20110501
  3. AMN107 [Suspect]
     Dosage: UNK
     Route: 048
     Dates: start: 20110502
  4. PARIET [Concomitant]
     Indication: GASTRITIS PROPHYLAXIS
     Dosage: 10 MG, UNK
     Route: 048
  5. LIPITOR [Concomitant]
     Indication: HYPERLIPIDAEMIA
     Dosage: 10 MG, UNK
     Route: 048
  6. ZETIA [Concomitant]
     Indication: HYPERLIPIDAEMIA
     Dosage: 10 MG, UNK
     Route: 048
  7. AZOSEMIDE [Concomitant]
     Indication: PROPHYLAXIS
     Dosage: 20 MG, UNK
     Route: 048
  8. ALLOPURINOL [Concomitant]
     Indication: PROPHYLAXIS
     Dosage: 100 MG, UNK
     Route: 048
  9. PANTETHINE [Concomitant]
     Indication: CONSTIPATION PROPHYLAXIS
     Dosage: 1.5 G, UNK
     Route: 048
  10. MAGNESIUM OXIDE [Concomitant]
     Indication: CONSTIPATION PROPHYLAXIS
     Dosage: 1.5 G, UNK
     Route: 048
     Dates: start: 20120828
  11. MYSLEE [Concomitant]
     Indication: INSOMNIA
     Route: 048
  12. CELECOXIB [Concomitant]
     Indication: RHEUMATOID ARTHRITIS
     Dosage: 200 MG, UNK
     Route: 048
  13. ORCL [Concomitant]
     Indication: RHEUMATOID ARTHRITIS
     Dosage: 200 MG, UNK
     Route: 048
  14. EPERISONE HYDROCHLORIDE [Concomitant]
     Indication: BACK PAIN
     Dosage: 100 MG, UNK
     Route: 048
  15. ONEALFA [Concomitant]
     Indication: OSTEOPOROSIS PROPHYLAXIS
     Dosage: 1 UG, UNK
     Route: 048
  16. MIKELAN [Concomitant]
     Indication: OCULAR HYPERTENSION
     Dosage: UNK
     Dates: start: 200811
  17. NICERGOLINE [Concomitant]
     Indication: CEREBRAL INFARCTION
     Dosage: 10 MG, UNK
     Route: 048
  18. NAPAGELN [Concomitant]
     Indication: BACK PAIN
     Route: 061
  19. MINODRONIC ACID [Concomitant]
     Indication: OSTEOPOROSIS PROPHYLAXIS
     Dosage: 1 MG, UNK
     Route: 048
  20. ATORVASTATIN [Concomitant]
     Indication: HYPERLIPIDAEMIA
     Dosage: 10 MG, UNK
     Route: 048
     Dates: start: 20120828
  21. SODIUM RABEPRAZOLE [Concomitant]
     Indication: GASTRITIS PROPHYLAXIS
     Dosage: 10 MG, UNK
     Route: 048
     Dates: start: 20120828
  22. GASMOTIN [Concomitant]
     Indication: GASTRITIS PROPHYLAXIS
     Dosage: 15 MG, UNK
     Route: 048
     Dates: start: 20120828
  23. RINDERON-VG [Concomitant]
     Indication: PRURITUS
     Dosage: UNK
     Route: 061
  24. ZEFNART [Concomitant]
     Indication: TINEA INFECTION
     Dosage: 20 MG, UNK
     Route: 061
     Dates: start: 20120828
  25. TALION [Concomitant]
     Indication: PRURITUS
     Dosage: 20 MG, UNK
     Route: 048
     Dates: start: 20120828
  26. HYALEIN [Concomitant]
     Indication: PROPHYLAXIS
     Dosage: UNK
     Route: 047
     Dates: start: 20120828
  27. TOLEDOMIN [Concomitant]
     Indication: INSOMNIA
     Dosage: 15 MG, UNK
     Route: 048
     Dates: start: 20120828

REACTIONS (2)
  - Sciatica [Recovering/Resolving]
  - Mechanical ileus [Recovered/Resolved]
